FAERS Safety Report 9406197 (Version 4)
Quarter: 2013Q4

REPORT INFORMATION
  Report Type: Spontaneous
  Country: US (occurrence: US)
  Receive Date: 20130717
  Receipt Date: 20131029
  Transmission Date: 20140711
  Serious: No
  Sender: FDA-Public Use
  Company Number: US-009507513-1307USA005203

PATIENT
  Sex: Female
  Weight: 73.16 kg

DRUGS (1)
  1. NEXPLANON [Suspect]
     Indication: CONTRACEPTION
     Dosage: 68 MG/3YEARS
     Route: 059
     Dates: start: 20130425, end: 20130710

REACTIONS (12)
  - Device breakage [Recovered/Resolved]
  - Implant site pain [Not Recovered/Not Resolved]
  - Product quality issue [Recovered/Resolved]
  - Implant site pruritus [Unknown]
  - Limb discomfort [Unknown]
  - Device difficult to use [Recovered/Resolved]
  - Irritability [Unknown]
  - Emotional disorder [Unknown]
  - Medical device removal [Recovered/Resolved]
  - Progesterone increased [Unknown]
  - Nausea [Unknown]
  - Agitation [Unknown]
